FAERS Safety Report 4886931-7 (Version None)
Quarter: 2006Q1

REPORT INFORMATION
  Report Type: 
  Country: None (occurrence: None)
  Receive Date: 20060118
  Receipt Date: 20060101
  Transmission Date: 20060701
  Serious: Yes (Other)
  Sender: FDA-Public Use
  Company Number: 200610133BWH

PATIENT

DRUGS (1)
  1. SORAFENIB [Suspect]
     Dosage: ORAL
     Route: 048

REACTIONS (2)
  - KERATOACANTHOMA [None]
  - SQUAMOUS CELL CARCINOMA [None]
